FAERS Safety Report 6960680 (Version 4)
Quarter: 2013Q3

REPORT INFORMATION
  Report Type: Report from Study
  Country: US (occurrence: US)
  Receive Date: 20090403
  Receipt Date: 20130820
  Transmission Date: 20140515
  Serious: Yes (Congenital Anomaly, Other)
  Sender: FDA-Public Use
  Company Number: US-GILEAD-2009-0021208

PATIENT
  Sex: Male

DRUGS (3)
  1. TRUVADA [Suspect]
     Indication: HIV INFECTION
     Dosage: 1 DF, QD
     Route: 064
     Dates: start: 20080922
  2. LOPINAVIR W/RITONAVIR [Suspect]
     Dosage: UNK
     Route: 064
     Dates: start: 20080922
  3. FOLATE [Concomitant]
     Route: 064

REACTIONS (2)
  - DiGeorge^s syndrome [Not Recovered/Not Resolved]
  - Fallot^s tetralogy [Unknown]
